FAERS Safety Report 16765491 (Version 2)
Quarter: 2020Q2

REPORT INFORMATION
  Report Type: Report from Study
  Country: CA (occurrence: CA)
  Receive Date: 20190903
  Receipt Date: 20200417
  Transmission Date: 20200713
  Serious: Yes (Death, Hospitalization)
  Sender: FDA-Public Use
  Company Number: CA-EMD SERONO-9109868

PATIENT
  Sex: Male

DRUGS (1)
  1. SAIZEN [Suspect]
     Active Substance: SOMATROPIN
     Indication: PRODUCT USED FOR UNKNOWN INDICATION
     Route: 058
     Dates: start: 20190729

REACTIONS (4)
  - Viral infection [Not Recovered/Not Resolved]
  - Emotional distress [Unknown]
  - Renal failure [Fatal]
  - Crying [Unknown]

NARRATIVE: CASE EVENT DATE: 2019
